FAERS Safety Report 17060721 (Version 2)
Quarter: 2019Q4

REPORT INFORMATION
  Report Type: Spontaneous
  Country: US (occurrence: US)
  Receive Date: 20191121
  Receipt Date: 20191224
  Transmission Date: 20200122
  Serious: Yes (Other)
  Sender: FDA-Public Use
  Company Number: US-ASTRAZENECA-2019SF63665

PATIENT
  Age: 19802 Day
  Sex: Male
  Weight: 88.5 kg

DRUGS (6)
  1. ALBUTEROL. [Concomitant]
     Active Substance: ALBUTEROL
     Indication: BRONCHITIS
     Route: 055
  2. FLEXARIL [Concomitant]
     Indication: BACK PAIN
     Dosage: 10.0MG AS REQUIRED
     Route: 046
  3. DICLOFENAC [Concomitant]
     Active Substance: DICLOFENAC
     Indication: BACK PAIN
     Dosage: 75 MG TAKES TWICE A DAY OR AS NEEDED
     Route: 048
  4. ALBUTEROL. [Concomitant]
     Active Substance: ALBUTEROL
     Indication: INFLUENZA
     Route: 055
  5. BEVESPI AEROSPHERE [Suspect]
     Active Substance: FORMOTEROL FUMARATE\GLYCOPYRROLATE
     Indication: CHRONIC OBSTRUCTIVE PULMONARY DISEASE
     Dosage: 9/4.8MCG 2 PUFFS TWICE A DAY
     Route: 055
  6. DICLOFENAC [Concomitant]
     Active Substance: DICLOFENAC
     Indication: SLEEP DISORDER
     Dosage: 75 MG TAKES TWICE A DAY OR AS NEEDED
     Route: 048

REACTIONS (13)
  - Wheezing [Unknown]
  - Arthritis [Unknown]
  - Chronic obstructive pulmonary disease [Unknown]
  - Bronchitis [Unknown]
  - Respiration abnormal [Unknown]
  - Scoliosis [Unknown]
  - Arthropathy [Unknown]
  - Stenosis [Unknown]
  - Spinal instability [Unknown]
  - Pain [Unknown]
  - Product dose omission [Unknown]
  - Device issue [Unknown]
  - Wrong technique in product usage process [Unknown]

NARRATIVE: CASE EVENT DATE: 20191027
